FAERS Safety Report 8613860-5 (Version None)
Quarter: 2012Q3

REPORT INFORMATION
  Report Type: 
  Country: None (occurrence: None)
  Receive Date: 20120823
  Receipt Date: 20120809
  Transmission Date: 20120928
  Serious: Yes (Other)
  Sender: FDA-Public Use
  Company Number: US-009507513-1207USA010259

PATIENT

DRUGS (9)
  1. MEDIATOR [Suspect]
     Route: 048
  2. DIAMICRON [Suspect]
     Route: 048
  3. METFORMIN HYDROCHLORIDE [Suspect]
     Route: 048
  4. REPAGLINIDE [Suspect]
     Route: 048
  5. RISPERIDONE [Suspect]
     Route: 048
  6. DEPAKOTE [Suspect]
     Route: 048
  7. JANUVIA [Suspect]
     Route: 048
  8. ABILIFY [Suspect]
     Route: 048
  9. GLUCOPHAGE [Suspect]
     Route: 048

REACTIONS (1)
  - HEPATIC CIRRHOSIS [None]
